FAERS Safety Report 12171127 (Version 1)
Quarter: 2016Q1

REPORT INFORMATION
  Report Type: Spontaneous
  Country: US (occurrence: None)
  Receive Date: 20160310
  Receipt Date: 20160310
  Transmission Date: 20160526
  Serious: No
  Sender: FDA-Public Use
  Company Number: None

PATIENT
  Age: 71 Year
  Sex: Female
  Weight: 39.46 kg

DRUGS (7)
  1. OXYCODONE [Concomitant]
     Active Substance: OXYCODONE
  2. VALIUM [Concomitant]
     Active Substance: DIAZEPAM
  3. FISH OIL [Concomitant]
     Active Substance: FISH OIL
  4. PHENAZOPYRIDIN HCL 200 MG GENERIC, ACELLA PHARM . [Suspect]
     Active Substance: PHENAZOPYRIDINE HYDROCHLORIDE
     Indication: BLADDER IRRITATION
     Dosage: 1PILL THREE TIMES DAILLY TAKEN BY MOUTH
     Route: 048
     Dates: start: 20160307, end: 20160307
  5. CENTRUM SILVER VITAMIN FOR WOMEN [Concomitant]
  6. OXYCOTIN [Concomitant]
  7. CALCITRATE [Concomitant]
     Active Substance: CALCIUM CITRATE

REACTIONS (1)
  - Swelling face [None]

NARRATIVE: CASE EVENT DATE: 20160307
